FAERS Safety Report 21618284 (Version 1)
Quarter: 2022Q4

REPORT INFORMATION
  Report Type: Spontaneous
  Country: FR (occurrence: FR)
  Receive Date: 20221119
  Receipt Date: 20221119
  Transmission Date: 20230113
  Serious: Yes (Death, Hospitalization)
  Sender: FDA-Public Use
  Company Number: FR-AFSSAPS-NY20222834

PATIENT
  Age: 74 Year
  Sex: Male
  Weight: 84 kg

DRUGS (12)
  1. PANTOPRAZOLE SODIUM [Suspect]
     Active Substance: PANTOPRAZOLE SODIUM
     Indication: Product used for unknown indication
     Dosage: 40 MILLIGRAM, ONCE A DAY
     Route: 048
     Dates: start: 20220830, end: 20220907
  2. CEFAZOLIN SODIUM [Suspect]
     Active Substance: CEFAZOLIN SODIUM
     Indication: Staphylococcal bacteraemia
     Dosage: 500 MILLIGRAM
     Route: 042
     Dates: start: 20220902, end: 20220909
  3. PROCAINE HYDROCHLORIDE [Concomitant]
     Active Substance: PROCAINE HYDROCHLORIDE
     Indication: Vitamin supplementation
     Dosage: 250 MILLIGRAM, ONCE A DAY
     Route: 048
  4. ALPRAZOLAM [Concomitant]
     Active Substance: ALPRAZOLAM
     Indication: Prophylaxis against alcoholic withdrawal syndrome
     Dosage: 0.5 MILLIGRAM, ONCE A DAY
     Route: 048
     Dates: start: 20220830, end: 20220904
  5. ACUPAN [Concomitant]
     Active Substance: NEFOPAM HYDROCHLORIDE
     Indication: Pain
     Dosage: UNK(^20 MG PAR PRISE^)
     Route: 048
     Dates: start: 20220901, end: 20220908
  6. BISOPROLOL + HCT MERCK [Concomitant]
     Indication: Hypertension
     Dosage: 5 MILLIGRAM, ONCE A DAY(2.5-0-2.5)
     Route: 048
  7. KARDEGIC [Concomitant]
     Active Substance: ASPIRIN DL-LYSINE
     Indication: Cardiovascular event prophylaxis
     Dosage: 75 MILLIGRAM, ONCE A DAY
     Route: 048
  8. THIAMINE [Concomitant]
     Active Substance: THIAMINE
     Indication: Vitamin supplementation
     Dosage: 250 MILLIGRAM, ONCE A DAY
     Route: 048
  9. ACTRAPID [Concomitant]
     Active Substance: INSULIN HUMAN
     Indication: Ketosis-prone diabetes mellitus
     Dosage: 18 INTERNATIONAL UNIT, ONCE A DAY
     Route: 058
  10. POTASSIUM CHLORIDE [Concomitant]
     Active Substance: POTASSIUM CHLORIDE
     Indication: Mineral supplementation
     Dosage: 6 DOSAGE FORM, ONCE A DAY
     Route: 048
  11. INSULIN GLARGINE [Concomitant]
     Active Substance: INSULIN GLARGINE
     Indication: Ketosis-prone diabetes mellitus
     Dosage: 46 INTERNATIONAL UNIT, ONCE A DAY
     Route: 058
  12. FUROSEMIDE [Concomitant]
     Active Substance: FUROSEMIDE
     Indication: Hypertension
     Dosage: 500 MILLIGRAM, ONCE A DAY
     Route: 048
     Dates: end: 20221004

REACTIONS (1)
  - Agranulocytosis [Fatal]

NARRATIVE: CASE EVENT DATE: 20220908
